FAERS Safety Report 15690275 (Version 1)
Quarter: 2018Q4

REPORT INFORMATION
  Report Type: Spontaneous
  Country: US (occurrence: US)
  Receive Date: 20181205
  Receipt Date: 20181205
  Transmission Date: 20190205
  Serious: Yes (Hospitalization)
  Sender: FDA-Public Use
  Company Number: None

PATIENT
  Age: 55 Year
  Sex: Female
  Weight: 97.1 kg

DRUGS (12)
  1. FUROSEMIDE. [Concomitant]
     Active Substance: FUROSEMIDE
  2. VICTOZA [Suspect]
     Active Substance: LIRAGLUTIDE
     Indication: TYPE 2 DIABETES MELLITUS
     Route: 058
  3. CILOSTAZOLE [Concomitant]
     Active Substance: CILOSTAZOL
  4. PRAZOSIN. [Concomitant]
     Active Substance: PRAZOSIN
  5. LISINOPRIL-HCTZ [Concomitant]
     Active Substance: HYDROCHLOROTHIAZIDE\LISINOPRIL
  6. LANTUS [Concomitant]
     Active Substance: INSULIN GLARGINE
  7. INSULIN ASPART [Concomitant]
     Active Substance: INSULIN ASPART
  8. ATORVASTATIN [Concomitant]
     Active Substance: ATORVASTATIN
  9. CLOZAPINE. [Concomitant]
     Active Substance: CLOZAPINE
  10. PANTOPRAZOLE [Concomitant]
     Active Substance: PANTOPRAZOLE
  11. SERTRALINE [Concomitant]
     Active Substance: SERTRALINE HYDROCHLORIDE
  12. SENNA-DOCUSATE [Concomitant]
     Active Substance: DOCUSATE SODIUM\SENNOSIDES

REACTIONS (6)
  - Acute kidney injury [None]
  - Nausea [None]
  - Vomiting [None]
  - Diarrhoea [None]
  - Pancreatitis [None]
  - Hypotension [None]

NARRATIVE: CASE EVENT DATE: 20181204
